FAERS Safety Report 8794225 (Version 2)
Quarter: 2014Q2

REPORT INFORMATION
  Report Type: Spontaneous
  Country: US (occurrence: US)
  Receive Date: 20120917
  Receipt Date: 20140616
  Transmission Date: 20141212
  Serious: Yes (Hospitalization)
  Sender: FDA-Public Use
  Company Number: PHEH2012US017882

PATIENT
  Age: 81 Year
  Sex: Female

DRUGS (16)
  1. TASIGNA [Suspect]
     Indication: CHRONIC MYELOID LEUKAEMIA
     Dosage: 150 MG, BID
     Route: 048
  2. ASPIRIN [Concomitant]
     Dosage: 81 MG, DAILY
     Route: 048
  3. LOPRESSOR [Concomitant]
     Dosage: 25 MG, DAILY
     Route: 048
  4. ATACAND [Concomitant]
     Dosage: 16 MG, DAILY
     Route: 048
  5. PRAVASTATIN [Concomitant]
     Dosage: 50 MG, DAILY
     Route: 048
  6. PLAVIX [Concomitant]
     Dosage: 75 MG, DAILY
     Route: 048
     Dates: start: 20120210
  7. COUMADIN [Concomitant]
     Dosage: 4 MG, DAILY
     Route: 048
     Dates: start: 20120228
  8. SYNTHROID [Concomitant]
     Dosage: 50 MG, DAILY
     Route: 048
  9. PRILOSEC [Concomitant]
     Dosage: 20 MG, DAILY
     Route: 048
  10. JANUVIA [Concomitant]
     Dosage: 50 MG, DAILY
     Route: 048
     Dates: start: 20120611
  11. DIOVAN [Concomitant]
     Dosage: 100 / 12. 5 MG DAILY
  12. POTASSIUM CHLORIDE [Concomitant]
     Dosage: 10 MEQ, DAILY
  13. CARDIZEM CD [Concomitant]
     Dosage: 120 MG, DAILY
     Route: 048
  14. COREG [Concomitant]
     Dosage: 1 DF, BID
     Route: 048
     Dates: start: 20130612
  15. LASIX [Concomitant]
     Dosage: 20 MG, PER DAY
     Route: 048
     Dates: start: 20120210
  16. OS-CAL 500 + D [Concomitant]
     Dosage: 1 DF, QD

REACTIONS (8)
  - Coronary artery restenosis [Unknown]
  - Acute myocardial infarction [Unknown]
  - Atrial fibrillation [Unknown]
  - Bradycardia [Unknown]
  - Pain in jaw [Unknown]
  - Pain in extremity [Unknown]
  - Fatigue [Unknown]
  - Rash generalised [Unknown]
